FAERS Safety Report 11043741 (Version 1)
Quarter: 2015Q2

REPORT INFORMATION
  Report Type: Spontaneous
  Country: US (occurrence: US)
  Receive Date: 20150417
  Receipt Date: 20150417
  Transmission Date: 20150821
  Serious: Yes (Hospitalization, Other)
  Sender: FDA-Public Use
  Company Number: US-SA-2015SA047473

PATIENT
  Age: 28 Year
  Sex: Female

DRUGS (2)
  1. CEREZYME [Suspect]
     Active Substance: IMIGLUCERASE
     Indication: GAUCHER^S DISEASE
     Route: 042
     Dates: end: 20150109
  2. CEREZYME [Suspect]
     Active Substance: IMIGLUCERASE
     Indication: GAUCHER^S DISEASE
     Route: 042
     Dates: start: 20150406

REACTIONS (5)
  - Fall [Unknown]
  - Loss of consciousness [Recovered/Resolved]
  - Endometriosis [Unknown]
  - Syncope [Recovered/Resolved]
  - Encephalitis [Unknown]

NARRATIVE: CASE EVENT DATE: 201412
